FAERS Safety Report 10342111 (Version 1)
Quarter: 2014Q3

REPORT INFORMATION
  Report Type: Spontaneous
  Country: US (occurrence: None)
  Receive Date: 20140724
  Receipt Date: 20140724
  Transmission Date: 20150326
  Serious: Yes (Other)
  Sender: FDA-Public Use
  Company Number: None

PATIENT
  Age: 67 Year
  Sex: Male

DRUGS (10)
  1. XIFOXAN [Concomitant]
  2. MORPHINE SUL [Concomitant]
  3. METHADONE [Concomitant]
     Active Substance: METHADONE HYDROCHLORIDE
  4. OLYSIO [Concomitant]
     Active Substance: SIMEPREVIR
  5. CITALOPRAM [Concomitant]
     Active Substance: CITALOPRAM HYDROBROMIDE
  6. TRAMADOL [Concomitant]
     Active Substance: TRAMADOL
  7. LOSARTAN [Concomitant]
     Active Substance: LOSARTAN
  8. SOVALDI [Suspect]
     Active Substance: SOFOSBUVIR
     Indication: HEPATITIS C
     Route: 048
     Dates: start: 20140711
  9. SOLVADI [Concomitant]
  10. HYDROXYZINE [Concomitant]
     Active Substance: HYDROXYZINE\HYDROXYZINE HYDROCHLORIDE

REACTIONS (2)
  - Insomnia [None]
  - Somnolence [None]

NARRATIVE: CASE EVENT DATE: 20140723
